FAERS Safety Report 9005119 (Version 1)
Quarter: 2013Q1

REPORT INFORMATION
  Report Type: Spontaneous
  Country: IE (occurrence: IE)
  Receive Date: 20130109
  Receipt Date: 20130109
  Transmission Date: 20140127
  Serious: Yes (Other)
  Sender: FDA-Public Use
  Company Number: IE-BRISTOL-MYERS SQUIBB COMPANY-17250168

PATIENT
  Age: 22 Year
  Sex: Female

DRUGS (5)
  1. ABILIFY [Suspect]
     Indication: PSYCHOTIC DISORDER
     Dosage: ALSO TAKEN IN 30 MG/DAY
  2. ABILIFY [Suspect]
     Indication: SCHIZOPHRENIA
     Dosage: ALSO TAKEN IN 30 MG/DAY
  3. PALIPERIDONE [Suspect]
     Indication: PSYCHOTIC DISORDER
     Dosage: MAR2012-UNK:75MG 1 IN 4 WEEK?15JUN2012-UNK:75MG 1 IN 4 WEEK
     Route: 030
     Dates: start: 201203, end: 20120724
  4. PALIPERIDONE [Suspect]
     Indication: SCHIZOPHRENIA
     Dosage: MAR2012-UNK:75MG 1 IN 4 WEEK?15JUN2012-UNK:75MG 1 IN 4 WEEK
     Route: 030
     Dates: start: 201203, end: 20120724
  5. PAROXETINE [Concomitant]
     Indication: DEPRESSION

REACTIONS (4)
  - Blood prolactin increased [Recovering/Resolving]
  - Galactorrhoea [Recovered/Resolved]
  - Psychotic disorder [Unknown]
  - Depressed mood [Unknown]
